FAERS Safety Report 24035405 (Version 1)
Quarter: 2024Q3

REPORT INFORMATION
  Report Type: Spontaneous
  Country: GB (occurrence: GB)
  Receive Date: 20240701
  Receipt Date: 20240701
  Transmission Date: 20241017
  Serious: Yes (Other)
  Sender: REGENERON
  Company Number: None

PATIENT
  Age: 66 Year
  Sex: Female

DRUGS (1)
  1. PRALUENT [Suspect]
     Active Substance: ALIROCUMAB
     Indication: Dyslipidaemia
     Dosage: 150 MG, QOW
     Dates: start: 20230101, end: 20230927

REACTIONS (3)
  - Asthma [Recovered/Resolved]
  - Depressed mood [Unknown]
  - Pain [Unknown]

NARRATIVE: CASE EVENT DATE: 20230101
